FAERS Safety Report 9395492 (Version 2)
Quarter: 2013Q3

REPORT INFORMATION
  Report Type: Spontaneous
  Country: US (occurrence: US)
  Receive Date: 20130711
  Receipt Date: 20130808
  Transmission Date: 20140515
  Serious: No
  Sender: FDA-Public Use
  Company Number: US-TEVA-416008USA

PATIENT
  Age: 69 Year
  Sex: Female
  Weight: 40.86 kg

DRUGS (3)
  1. PROAIR HFA [Suspect]
     Indication: BRONCHOSPASM
  2. SYMBICORT [Concomitant]
     Indication: CHRONIC OBSTRUCTIVE PULMONARY DISEASE
  3. SPIRIVA [Concomitant]
     Indication: CHRONIC OBSTRUCTIVE PULMONARY DISEASE

REACTIONS (1)
  - Dyspnoea [Unknown]
